FAERS Safety Report 6981001-6 (Version None)
Quarter: 2010Q3

REPORT INFORMATION
  Report Type: 
  Country: None (occurrence: None)
  Receive Date: 20100914
  Receipt Date: 20100906
  Transmission Date: 20110219
  Serious: Yes (Other)
  Sender: FDA-Public Use
  Company Number: B0674357A

PATIENT
  Sex: Male
  Weight: 95 kg

DRUGS (1)
  1. AUGMENTIN '125' [Suspect]
     Indication: GASTROENTERITIS BACTERIAL
     Dosage: 1G TWICE PER DAY
     Route: 048

REACTIONS (2)
  - CHEST PAIN [None]
  - PALPITATIONS [None]
